FAERS Safety Report 5174568-4 (Version None)
Quarter: 2006Q4

REPORT INFORMATION
  Report Type: 
  Country: None (occurrence: None)
  Receive Date: 20061214
  Receipt Date: 20060619
  Transmission Date: 20070319
  Serious: No
  Sender: FDA-Public Use
  Company Number: US-AMGEN-KDL183485

PATIENT
  Sex: Female

DRUGS (2)
  1. ENBREL [Suspect]
     Indication: RHEUMATOID ARTHRITIS
     Route: 058
     Dates: start: 20050415
  2. ARAVA [Concomitant]
     Route: 048
     Dates: start: 20041101

REACTIONS (4)
  - COUGH [None]
  - INJECTION SITE IRRITATION [None]
  - THROAT IRRITATION [None]
  - THROAT LESION [None]
